FAERS Safety Report 9696957 (Version 2)
Quarter: 2013Q4

REPORT INFORMATION
  Report Type: Spontaneous
  Country: US (occurrence: US)
  Receive Date: 20131119
  Receipt Date: 20131206
  Transmission Date: 20140711
  Serious: Yes (Death, Other)
  Sender: FDA-Public Use
  Company Number: US-GILEAD-2013-0087741

PATIENT
  Sex: Female

DRUGS (3)
  1. LETAIRIS [Suspect]
     Indication: COR PULMONALE CHRONIC
     Dosage: 10 MG, QD
     Route: 048
     Dates: start: 20120404
  2. LETAIRIS [Suspect]
     Indication: PULMONARY ARTERIAL HYPERTENSION
  3. LETAIRIS [Suspect]
     Indication: MOUNTAIN SICKNESS ACUTE

REACTIONS (7)
  - Cardiac failure congestive [Fatal]
  - Pneumonia [Fatal]
  - Asthenia [Fatal]
  - Haemorrhage [Fatal]
  - General physical health deterioration [Fatal]
  - Urinary tract infection [Fatal]
  - Nephrolithiasis [Fatal]
